FAERS Safety Report 6456699-1 (Version None)
Quarter: 2009Q4

REPORT INFORMATION
  Report Type: 
  Country: None (occurrence: None)
  Receive Date: 20091125
  Receipt Date: 20091118
  Transmission Date: 20100525
  Serious: Yes (Hospitalization)
  Sender: FDA-Public Use
  Company Number: FR-ASTRAZENECA-2009SE27557

PATIENT
  Age: 73 Year
  Sex: Female

DRUGS (7)
  1. MOPRAL [Suspect]
     Indication: GASTROOESOPHAGEAL REFLUX DISEASE
     Route: 048
     Dates: start: 20090101, end: 20090215
  2. LEVOTHYROXINE SODIUM [Concomitant]
     Indication: HYPOTHYROIDISM
     Route: 048
  3. CALDINE [Concomitant]
     Indication: HYPERTENSION
     Route: 048
  4. KENZEN [Concomitant]
     Indication: HYPERTENSION
     Route: 048
  5. EUPRESSYL [Concomitant]
     Route: 048
  6. MODURETIC 5-50 [Concomitant]
     Indication: HYPERTENSION
     Route: 048
  7. NOVONORM [Concomitant]
     Indication: TYPE 2 DIABETES MELLITUS
     Route: 065

REACTIONS (1)
  - DRUG RASH WITH EOSINOPHILIA AND SYSTEMIC SYMPTOMS [None]
